FAERS Safety Report 5907873-1 (Version None)
Quarter: 2008Q4

REPORT INFORMATION
  Report Type: 
  Country: None (occurrence: None)
  Receive Date: 20081003
  Receipt Date: 20080922
  Transmission Date: 20090506
  Serious: Yes (Other)
  Sender: FDA-Public Use
  Company Number: NL-ROCHE-587570

PATIENT
  Age: 17 Month
  Sex: Female

DRUGS (4)
  1. DIAZEPAM [Suspect]
     Indication: OPSOCLONUS MYOCLONUS
     Route: 065
  2. RITUXIMAB [Suspect]
     Indication: OPSOCLONUS MYOCLONUS
     Dosage: RECEIVED FOUR DOSES OVER TWO MONTHS.
     Route: 042
  3. METHYLPREDNISOLONE [Suspect]
     Indication: OPSOCLONUS MYOCLONUS
     Route: 065
  4. PHENYTOIN [Suspect]
     Indication: OPSOCLONUS MYOCLONUS
     Route: 065

REACTIONS (6)
  - B-LYMPHOCYTE COUNT DECREASED [None]
  - BODY TEMPERATURE INCREASED [None]
  - DIARRHOEA [None]
  - HYPOGAMMAGLOBULINAEMIA [None]
  - OPSOCLONUS MYOCLONUS [None]
  - VOMITING [None]
